FAERS Safety Report 23150067 (Version 1)
Quarter: 2023Q4

REPORT INFORMATION
  Report Type: Spontaneous
  Country: DK (occurrence: DK)
  Receive Date: 20231106
  Receipt Date: 20231106
  Transmission Date: 20240110
  Serious: Yes (Other)
  Sender: FDA-Public Use
  Company Number: DK-AMGEN-DNKSP2023192881

PATIENT

DRUGS (1)
  1. ADALIMUMAB [Suspect]
     Active Substance: ADALIMUMAB\ISOPROPYL ALCOHOL
     Indication: Juvenile idiopathic arthritis
     Dosage: UNK
     Route: 065

REACTIONS (11)
  - Inflammatory bowel disease [Unknown]
  - Juvenile idiopathic arthritis [Unknown]
  - Uveitis [Unknown]
  - Thrombocytopenia [Unknown]
  - Injection site reaction [Unknown]
  - Infusion related reaction [Unknown]
  - Treatment noncompliance [Unknown]
  - Drug ineffective [Unknown]
  - Mental disorder [Unknown]
  - Ill-defined disorder [Unknown]
  - Hypersensitivity [Unknown]
